FAERS Safety Report 15949232 (Version 1)
Quarter: 2019Q1

REPORT INFORMATION
  Report Type: Report from Study
  Country: GB (occurrence: GB)
  Receive Date: 20190212
  Receipt Date: 20190212
  Transmission Date: 20190417
  Serious: Yes (Death, Life-Threatening, Hospitalization)
  Sender: FDA-Public Use
  Company Number: GB-AUROBINDO-08-AUR-03012

PATIENT

DRUGS (1)
  1. PARACETAMOL TABLET [Suspect]
     Active Substance: ACETAMINOPHEN
     Indication: PRODUCT USED FOR UNKNOWN INDICATION
     Dosage: 16-62 GRAMS
     Route: 048

REACTIONS (3)
  - Acute hepatic failure [Recovering/Resolving]
  - Haemorrhage intracranial [Fatal]
  - Overdose [Recovering/Resolving]
